FAERS Safety Report 10309360 (Version 1)
Quarter: 2014Q3

REPORT INFORMATION
  Report Type: Report from Study
  Country: SG (occurrence: SG)
  Receive Date: 20140716
  Receipt Date: 20140716
  Transmission Date: 20150326
  Serious: Yes (Hospitalization)
  Sender: FDA-Public Use
  Company Number: SG-B.I. PHARMACEUTICALS,INC./RIDGEFIELD-2014-BI-32225BI

PATIENT
  Age: 58 Year
  Sex: Female

DRUGS (1)
  1. BIBW 2992 [Suspect]
     Active Substance: AFATINIB
     Indication: LUNG ADENOCARCINOMA METASTATIC
     Dosage: 0 MG
     Route: 048

REACTIONS (1)
  - Intervertebral disc protrusion [Not Recovered/Not Resolved]

NARRATIVE: CASE EVENT DATE: 20140417
